FAERS Safety Report 14917889 (Version 1)
Quarter: 2018Q2

REPORT INFORMATION
  Report Type: Spontaneous
  Country: CN (occurrence: CN)
  Receive Date: 20180521
  Receipt Date: 20180521
  Transmission Date: 20180711
  Serious: Yes (Life-Threatening, Hospitalization, Other)
  Sender: FDA-Public Use
  Company Number: CN-ASTELLAS-2018US022961

PATIENT
  Age: 68 Year
  Sex: Male
  Weight: 50 kg

DRUGS (3)
  1. PROGRAF [Suspect]
     Active Substance: TACROLIMUS\TACROLIMUS ANHYDROUS
     Indication: PROPHYLAXIS AGAINST TRANSPLANT REJECTION
     Dosage: 5 MG, EVERY 12 HOURS (Q12H)
     Route: 048
     Dates: start: 20170316, end: 20180428
  2. SANDIMMUN NEORAL [Suspect]
     Active Substance: CYCLOSPORINE
     Indication: PROPHYLAXIS AGAINST TRANSPLANT REJECTION
     Route: 065
     Dates: start: 20180428
  3. NOXAFIL [Suspect]
     Active Substance: POSACONAZOLE
     Indication: ANTIFUNGAL TREATMENT
     Dosage: UNK, UNKNOWN FREQ.
     Route: 065
     Dates: start: 20180429

REACTIONS (9)
  - Chronic obstructive pulmonary disease [Unknown]
  - Mental disorder [Recovering/Resolving]
  - Renal failure [Unknown]
  - Off label use [Recovered/Resolved]
  - Arteriosclerosis coronary artery [Unknown]
  - Pulmonary arterial hypertension [Unknown]
  - Epilepsy [Recovering/Resolving]
  - Atrial flutter [Unknown]
  - Lung infection [Unknown]

NARRATIVE: CASE EVENT DATE: 20180305
